FAERS Safety Report 6976889-9 (Version None)
Quarter: 2010Q3

REPORT INFORMATION
  Report Type: 
  Country: None (occurrence: None)
  Receive Date: 20100910
  Receipt Date: 20100901
  Transmission Date: 20110219
  Serious: Yes (Other)
  Sender: FDA-Public Use
  Company Number: B0673888A

PATIENT
  Sex: Female

DRUGS (1)
  1. FLIXONASE [Suspect]
     Indication: PRODUCT USED FOR UNKNOWN INDICATION
     Route: 065

REACTIONS (3)
  - BENIGN INTRACRANIAL HYPERTENSION [None]
  - HYPOACUSIS [None]
  - VISUAL IMPAIRMENT [None]
